FAERS Safety Report 18764338 (Version 1)
Quarter: 2021Q1

REPORT INFORMATION
  Report Type: Spontaneous
  Country: BE (occurrence: BE)
  Receive Date: 20210120
  Receipt Date: 20210120
  Transmission Date: 20210419
  Serious: Yes (Hospitalization)
  Sender: FDA-Public Use
  Company Number: BE-B.I. PHARMACEUTICALS,INC./RIDGEFIELD-2020-BI-070034

PATIENT
  Age: 70 Year
  Sex: Male
  Weight: 102 kg

DRUGS (4)
  1. OFEV [Suspect]
     Active Substance: NINTEDANIB
     Dates: start: 20190615, end: 20200330
  2. OFEV [Suspect]
     Active Substance: NINTEDANIB
     Dates: start: 20190430, end: 20190615
  3. OFEV [Suspect]
     Active Substance: NINTEDANIB
     Indication: PRODUCT USED FOR UNKNOWN INDICATION
     Route: 065
     Dates: start: 20181009, end: 20190427
  4. OFEV [Suspect]
     Active Substance: NINTEDANIB
     Dates: start: 20200406

REACTIONS (4)
  - Dyspepsia [Recovered/Resolved with Sequelae]
  - Dehydration [Recovered/Resolved with Sequelae]
  - Diarrhoea [Recovered/Resolved with Sequelae]
  - Diarrhoea [Recovered/Resolved with Sequelae]

NARRATIVE: CASE EVENT DATE: 201810
